FAERS Safety Report 8471472-0 (Version None)
Quarter: 2012Q2

REPORT INFORMATION
  Report Type: 
  Country: None (occurrence: None)
  Receive Date: 20120323
  Receipt Date: 20111123
  Transmission Date: 20120825
  Serious: Yes (Hospitalization)
  Sender: FDA-Public Use
  Company Number: 163-21880-11100370

PATIENT
  Age: 78 Year
  Sex: Male

DRUGS (8)
  1. AMLODIPINE BESYLATE (AMLODIPINE BESILATE) (UNKNOWN) [Concomitant]
  2. REVLIMID [Suspect]
     Indication: MULTIPLE MYELOMA
     Dosage: 15 MG, 1 IN 1 D, PO
     Route: 048
     Dates: start: 20110610
  3. MICROZIDE (HYDROCHLOROTHIAZIDE) (UNKNOWN) [Concomitant]
  4. CRESTOR (ROSUVASTATIN) (UNKNOWN) [Concomitant]
  5. AMLODIPINE BESY-BENAZEPRIL HCL (AMLODIPINE BESYLATE W/BENAZEPRIL HYDRO [Concomitant]
  6. RANITIDINE HCL (RANITIDINE HYDROCHLORIDE) (UNKNOWN) [Concomitant]
  7. KLOR-CON (POTASSIUM CHLORIDE) (UNKNOWN) [Concomitant]
  8. DEXAMETHASONE [Concomitant]

REACTIONS (1)
  - THROMBOSIS [None]
